FAERS Safety Report 5885252-3 (Version None)
Quarter: 2008Q3

REPORT INFORMATION
  Report Type: 
  Country: None (occurrence: None)
  Receive Date: 20080916
  Receipt Date: 20080909
  Transmission Date: 20090109
  Serious: Yes (Death, Life-Threatening, Hospitalization, Other)
  Sender: FDA-Public Use
  Company Number: US-GILEAD-2008-0017960

PATIENT
  Sex: Female
  Weight: 64.468 kg

DRUGS (9)
  1. LETAIRIS [Suspect]
     Indication: PULMONARY ARTERIAL HYPERTENSION
     Route: 048
     Dates: start: 20070201, end: 20080821
  2. FLOLAN [Concomitant]
     Route: 042
     Dates: start: 20080627, end: 20080821
  3. SILDENAFIL CITRATE [Concomitant]
     Route: 048
     Dates: start: 20080627, end: 20080821
  4. PREDNISONE TAB [Concomitant]
     Route: 048
     Dates: start: 20080808, end: 20080808
  5. PREDNISONE TAB [Concomitant]
     Route: 042
     Dates: start: 20080808, end: 20080821
  6. FUROSEMIDE [Concomitant]
     Route: 042
     Dates: start: 20080808, end: 20080821
  7. DIGOXIN [Concomitant]
     Route: 048
     Dates: start: 20080808, end: 20080821
  8. NEXIUM [Concomitant]
     Route: 042
     Dates: start: 20080808
  9. SOLU-MEDROL [Concomitant]
     Route: 042
     Dates: start: 20080811

REACTIONS (3)
  - PULMONARY ARTERIAL HYPERTENSION [None]
  - RIGHT VENTRICULAR FAILURE [None]
  - SCLERODERMA [None]
